FAERS Safety Report 11201828 (Version 1)
Quarter: 2015Q2

REPORT INFORMATION
  Report Type: Spontaneous
  Country: US (occurrence: None)
  Receive Date: 20150618
  Receipt Date: 20150618
  Transmission Date: 20150821
  Serious: No
  Sender: FDA-Public Use
  Company Number: None

PATIENT
  Age: 56 Year
  Sex: Female

DRUGS (1)
  1. NEULASTA [Suspect]
     Active Substance: PEGFILGRASTIM
     Indication: CHEMOTHERAPY
     Dosage: Q 3WK 24HR AFTER
     Route: 058
     Dates: start: 20150504, end: 20150615

REACTIONS (1)
  - Rash generalised [None]

NARRATIVE: CASE EVENT DATE: 20150617
